FAERS Safety Report 19057992 (Version 2)
Quarter: 2021Q2

REPORT INFORMATION
  Report Type: Spontaneous
  Country: US (occurrence: US)
  Receive Date: 20210324
  Receipt Date: 20210504
  Transmission Date: 20210717
  Serious: No
  Sender: FDA-Public Use
  Company Number: US-ASTRAZENECA-2021A093196

PATIENT
  Age: 26298 Day
  Sex: Male
  Weight: 86.2 kg

DRUGS (6)
  1. SYMBICORT [Suspect]
     Active Substance: BUDESONIDE\FORMOTEROL FUMARATE DIHYDRATE
     Indication: CHRONIC OBSTRUCTIVE PULMONARY DISEASE
     Dosage: 80/4.5MCG, 2 PUFFS TWO TIMES A DAY
     Route: 055
     Dates: start: 20210221
  2. SYMBICORT [Suspect]
     Active Substance: BUDESONIDE\FORMOTEROL FUMARATE DIHYDRATE
     Indication: CHRONIC OBSTRUCTIVE PULMONARY DISEASE
     Dosage: 80MG UNKNOWN
     Route: 055
     Dates: start: 20201102
  3. PREDINOSE [Concomitant]
     Indication: PHARYNGEAL SWELLING
     Route: 065
  4. SYMBICORT [Suspect]
     Active Substance: BUDESONIDE\FORMOTEROL FUMARATE DIHYDRATE
     Indication: CHRONIC OBSTRUCTIVE PULMONARY DISEASE
     Dosage: 80/4.5MCG, 2 PUFFS TWO TIMES A DAY
     Route: 055
     Dates: start: 20210126, end: 20210211
  5. XOPENEX [Concomitant]
     Active Substance: LEVALBUTEROL HYDROCHLORIDE
     Route: 065
  6. SYMBICORT [Suspect]
     Active Substance: BUDESONIDE\FORMOTEROL FUMARATE DIHYDRATE
     Indication: CHRONIC OBSTRUCTIVE PULMONARY DISEASE
     Dosage: 80/4.5MCG, 1 PUFF TWO TIMES A DAY
     Route: 055

REACTIONS (10)
  - Dyspnoea [Recovered/Resolved]
  - Rash erythematous [Unknown]
  - Product use issue [Unknown]
  - Neck pain [Unknown]
  - Testicular pain [Unknown]
  - Pharyngeal swelling [Not Recovered/Not Resolved]
  - Swelling [Not Recovered/Not Resolved]
  - Blood pressure increased [Unknown]
  - Dysuria [Unknown]
  - Back pain [Unknown]

NARRATIVE: CASE EVENT DATE: 20210211
